FAERS Safety Report 20702136 (Version 1)
Quarter: 2022Q2

REPORT INFORMATION
  Report Type: Spontaneous
  Country: US (occurrence: None)
  Receive Date: 20220411
  Receipt Date: 20220411
  Transmission Date: 20220721
  Serious: No
  Sender: FDA-Public Use
  Company Number: None

PATIENT
  Age: 72 Year
  Sex: Male
  Weight: 99 kg

DRUGS (2)
  1. METHYLPREDNISOLONE ACETATE [Suspect]
     Active Substance: METHYLPREDNISOLONE ACETATE
  2. Methylprednisolone Suspension [Concomitant]

REACTIONS (4)
  - Product substitution issue [None]
  - Product use complaint [None]
  - Injury associated with device [None]
  - Liquid product physical issue [None]

NARRATIVE: CASE EVENT DATE: 20220409
